FAERS Safety Report 7643902-5 (Version None)
Quarter: 2011Q3

REPORT INFORMATION
  Report Type: 
  Country: None (occurrence: None)
  Receive Date: 20110729
  Receipt Date: 20110307
  Transmission Date: 20111222
  Serious: No
  Sender: FDA-Public Use
  Company Number: US-GLAXOSMITHKLINE-A0916966A

PATIENT
  Age: 59 Year
  Sex: Female

DRUGS (4)
  1. IMITREX [Suspect]
     Indication: MIGRAINE
     Dosage: 50MG AS REQUIRED
     Route: 048
     Dates: start: 19950101
  2. ULTRACET [Concomitant]
  3. EXCEDRIN (MIGRAINE) [Concomitant]
  4. BENADRYL [Concomitant]

REACTIONS (3)
  - OFF LABEL USE [None]
  - DRUG ADMINISTRATION ERROR [None]
  - THERAPEUTIC RESPONSE UNEXPECTED [None]
